FAERS Safety Report 5041020-6 (Version None)
Quarter: 2006Q2

REPORT INFORMATION
  Report Type: 
  Country: None (occurrence: None)
  Receive Date: 20060629
  Receipt Date: 20060629
  Transmission Date: 20061013
  Serious: Yes (Other)
  Sender: FDA-Public Use
  Company Number: None

PATIENT
  Sex: Male
  Weight: 68.0396 kg

DRUGS (1)
  1. KETEK [Suspect]
     Indication: SINUSITIS
     Dosage: 2 PILLS DAILY PO
     Route: 048
     Dates: start: 20060619, end: 20060622

REACTIONS (6)
  - ABDOMINAL TENDERNESS [None]
  - BLOOD BILIRUBIN INCREASED [None]
  - DEHYDRATION [None]
  - JAUNDICE [None]
  - TRANSAMINASES INCREASED [None]
  - VOMITING [None]
